FAERS Safety Report 10601860 (Version 1)
Quarter: 2014Q4

REPORT INFORMATION
  Report Type: Spontaneous
  Country: US (occurrence: None)
  Receive Date: 20141120
  Receipt Date: 20141120
  Transmission Date: 20150529
  Serious: Yes (Hospitalization)
  Sender: FDA-Public Use
  Company Number: 2014EXPUS00274

PATIENT
  Age: 77 Year
  Sex: Male
  Weight: 70.5 kg

DRUGS (1)
  1. EXPAREL [Suspect]
     Active Substance: BUPIVACAINE
     Indication: POSTOPERATIVE ANALGESIA
     Dates: start: 20140927, end: 20140927

REACTIONS (2)
  - Necrotising fasciitis [None]
  - Soft tissue infection [None]

NARRATIVE: CASE EVENT DATE: 20140927
